FAERS Safety Report 9758627 (Version 1)
Quarter: 2013Q4

REPORT INFORMATION
  Report Type: Spontaneous
  Country: US (occurrence: None)
  Receive Date: 20131216
  Receipt Date: 20131216
  Transmission Date: 20140711
  Serious: Yes (Other)
  Sender: FDA-Public Use
  Company Number: RB-50018-2013

PATIENT
  Age: 18 Year
  Sex: Male

DRUGS (1)
  1. SUBOXONE 8 MG [Suspect]
     Indication: DRUG DEPENDENCE
     Dosage: (8 MG, SUBOXONE FILM UNKNOWN)

REACTIONS (4)
  - Oedema peripheral [None]
  - Tremor [None]
  - Dry mouth [None]
  - Disorientation [None]
